FAERS Safety Report 25217095 (Version 1)
Quarter: 2025Q2

REPORT INFORMATION
  Report Type: Spontaneous
  Country: DK (occurrence: DK)
  Receive Date: 20250419
  Receipt Date: 20250419
  Transmission Date: 20250716
  Serious: Yes (Other)
  Sender: TEVA
  Company Number: None

PATIENT
  Age: 41 Year
  Sex: Female

DRUGS (1)
  1. PACLITAXEL [Suspect]
     Active Substance: PACLITAXEL
     Indication: Breast cancer
     Route: 065
     Dates: start: 20171018, end: 20180105

REACTIONS (9)
  - Neuropathy peripheral [Unknown]
  - Raynaud^s phenomenon [Unknown]
  - Discomfort [Unknown]
  - Musculoskeletal stiffness [Unknown]
  - Paraesthesia [Unknown]
  - Memory impairment [Unknown]
  - Neuralgia [Unknown]
  - Sensory disturbance [Unknown]
  - Tenderness [Unknown]

NARRATIVE: CASE EVENT DATE: 20180101
